FAERS Safety Report 19092076 (Version 1)
Quarter: 2021Q2

REPORT INFORMATION
  Report Type: Spontaneous
  Country: US (occurrence: US)
  Receive Date: 20210402
  Receipt Date: 20210402
  Transmission Date: 20210717
  Serious: Yes (Disabling)
  Sender: FDA-Public Use
  Company Number: None

PATIENT
  Age: 37 Year
  Sex: Female
  Weight: 80.55 kg

DRUGS (5)
  1. METHYLPHENDIDATE ER 27 MG TAB NORTH/ SUBST FOR: CONCERTA SA 27 [Suspect]
     Active Substance: METHYLPHENIDATE
     Indication: ATTENTION DEFICIT HYPERACTIVITY DISORDER
     Dosage: ?          QUANTITY:1 DF DOSAGE FORM;?
     Route: 048
     Dates: start: 20210316, end: 20210331
  2. TEMAZEPAM. [Concomitant]
     Active Substance: TEMAZEPAM
  3. MAGNESIUM SUPPLEMENT [Concomitant]
     Active Substance: MAGNESIUM
  4. VITAMIN D SUPPLEMENT [Concomitant]
     Active Substance: VITAMIN D NOS
  5. PRAZOSIN. [Concomitant]
     Active Substance: PRAZOSIN

REACTIONS (7)
  - Diarrhoea [None]
  - Abdominal pain upper [None]
  - Emotional disorder [None]
  - Menstrual disorder [None]
  - Product substitution issue [None]
  - Headache [None]
  - Disturbance in attention [None]

NARRATIVE: CASE EVENT DATE: 20210329
